FAERS Safety Report 8544730-9 (Version None)
Quarter: 2012Q3

REPORT INFORMATION
  Report Type: 
  Country: None (occurrence: None)
  Receive Date: 20120727
  Receipt Date: 20120718
  Transmission Date: 20120928
  Serious: Yes (Other)
  Sender: FDA-Public Use
  Company Number: FR-BRISTOL-MYERS SQUIBB COMPANY-16686404

PATIENT
  Age: 14 Year
  Sex: Male
  Weight: 41 kg

DRUGS (3)
  1. ABACAVIR SULFATE/LAMIVUDINE [Concomitant]
     Indication: HIV INFECTION
     Dosage: 1DF: 600/300MG
     Route: 048
     Dates: start: 20110131
  2. NORVIR [Concomitant]
     Indication: HIV INFECTION
  3. REYATAZ [Suspect]
     Indication: HIV INFECTION
     Route: 048
     Dates: start: 20110131, end: 20110909

REACTIONS (2)
  - SALMONELLOSIS [None]
  - CYSTITIS HAEMORRHAGIC [None]
